FAERS Safety Report 5489185-6 (Version None)
Quarter: 2007Q4

REPORT INFORMATION
  Report Type: 
  Country: None (occurrence: None)
  Receive Date: 20071018
  Receipt Date: 20070625
  Transmission Date: 20080405
  Serious: No
  Sender: FDA-Public Use
  Company Number: US-BRISTOL-MYERS SQUIBB COMPANY-13824388

PATIENT
  Sex: Male
  Weight: 61 kg

DRUGS (8)
  1. MEGACE [Suspect]
     Indication: CACHEXIA
     Route: 048
     Dates: start: 20070507, end: 20070621
  2. XANAX [Concomitant]
  3. LOMOTIL [Concomitant]
  4. ZITHROMAX [Concomitant]
  5. PREZISTA [Concomitant]
  6. TRUVADA [Concomitant]
  7. NORVIR [Concomitant]
  8. VFEND [Concomitant]

REACTIONS (2)
  - ARTHRALGIA [None]
  - JOINT SWELLING [None]
